FAERS Safety Report 7594154-6 (Version None)
Quarter: 2011Q3

REPORT INFORMATION
  Report Type: 
  Country: None (occurrence: None)
  Receive Date: 20110706
  Receipt Date: 20110701
  Transmission Date: 20111222
  Serious: No
  Sender: FDA-Public Use
  Company Number: US-TEVA-288971USA

PATIENT
  Sex: Male
  Weight: 95.34 kg

DRUGS (2)
  1. AZILECT [Suspect]
     Indication: PARKINSON'S DISEASE
     Dosage: 1 MILLIGRAM;
     Route: 048
     Dates: start: 20110701
  2. SINEMET [Suspect]
     Indication: PARKINSON'S DISEASE

REACTIONS (2)
  - NAUSEA [None]
  - DIZZINESS [None]
